FAERS Safety Report 12123587 (Version 1)
Quarter: 2016Q1

REPORT INFORMATION
  Report Type: Spontaneous
  Country: US (occurrence: None)
  Receive Date: 20160226
  Receipt Date: 20160226
  Transmission Date: 20160526
  Serious: Yes (Other)
  Sender: FDA-Public Use
  Company Number: None

PATIENT
  Age: 7 Year
  Sex: Female
  Weight: 10.66 kg

DRUGS (1)
  1. LEVETIRACETAM 100MG/ML [Suspect]
     Active Substance: LEVETIRACETAM
     Indication: SEIZURE
     Route: 048
     Dates: start: 2009, end: 2014

REACTIONS (1)
  - Seizure [None]

NARRATIVE: CASE EVENT DATE: 20140917
